FAERS Safety Report 15995788 (Version 1)
Quarter: 2019Q1

REPORT INFORMATION
  Report Type: Spontaneous
  Country: NO (occurrence: NO)
  Receive Date: 20190222
  Receipt Date: 20190222
  Transmission Date: 20190418
  Serious: Yes (Hospitalization, Disabling)
  Sender: FDA-Public Use
  Company Number: NO-JNJFOC-20190230035

PATIENT
  Age: 62 Year
  Sex: Male

DRUGS (8)
  1. EKVACILLIN [Suspect]
     Active Substance: CLOXACILLIN SODIUM
     Indication: ARTHRITIS BACTERIAL
     Route: 065
     Dates: start: 20180730, end: 20180810
  2. TARGINIQ ER [Suspect]
     Active Substance: NALOXONE HYDROCHLORIDE\OXYCODONE HYDROCHLORIDE
     Indication: PAIN
     Route: 048
     Dates: start: 20180730, end: 20180810
  3. TRAMADOL HYDROCHLORIDE. [Suspect]
     Active Substance: TRAMADOL HYDROCHLORIDE
     Indication: PAIN
     Route: 065
     Dates: start: 20180730, end: 20180810
  4. PARACETAMOL [Suspect]
     Active Substance: ACETAMINOPHEN
     Indication: PAIN
     Route: 065
     Dates: start: 20180730, end: 20180817
  5. ARCOXIA [Suspect]
     Active Substance: ETORICOXIB
     Indication: PAIN
     Route: 048
     Dates: start: 20180730, end: 20180817
  6. DICLOCIL [Suspect]
     Active Substance: DICLOXACILLIN SODIUM
     Indication: ARTHRITIS BACTERIAL
     Route: 048
     Dates: start: 20180727, end: 20180827
  7. DIOVAN [Concomitant]
     Active Substance: VALSARTAN
     Indication: HYPERTENSION
     Route: 048
  8. SOMAC [Concomitant]
     Active Substance: PANTOPRAZOLE SODIUM
     Indication: GASTROOESOPHAGEAL REFLUX DISEASE
     Route: 048

REACTIONS (2)
  - Hepatotoxicity [Recovering/Resolving]
  - Hyperbilirubinaemia [Unknown]

NARRATIVE: CASE EVENT DATE: 20180825
